FAERS Safety Report 18948021 (Version 4)
Quarter: 2021Q2

REPORT INFORMATION
  Report Type: Spontaneous
  Country: US (occurrence: US)
  Receive Date: 20210226
  Receipt Date: 20210427
  Transmission Date: 20210717
  Serious: Yes (Hospitalization)
  Sender: FDA-Public Use
  Company Number: US-PFIZER INC-2021182470

PATIENT
  Age: 72 Year
  Sex: Male
  Weight: 70.3 kg

DRUGS (2)
  1. GENOTROPIN [Suspect]
     Active Substance: SOMATROPIN
     Dosage: .06 MG, 2X/DAY
     Dates: start: 2011
  2. GENOTROPIN [Suspect]
     Active Substance: SOMATROPIN
     Indication: BLOOD FOLLICLE STIMULATING HORMONE
     Dosage: 1.6 MG, DAILY

REACTIONS (3)
  - Dysphagia [Recovered/Resolved]
  - COVID-19 [Recovered/Resolved]
  - Off label use [Unknown]
